FAERS Safety Report 16228506 (Version 1)
Quarter: 2019Q2

REPORT INFORMATION
  Report Type: Spontaneous
  Country: US (occurrence: US)
  Receive Date: 20190421
  Receipt Date: 20190421
  Transmission Date: 20190711
  Serious: Yes (Hospitalization, Disabling)
  Sender: FDA-Public Use
  Company Number: None

PATIENT
  Age: 30 Year
  Sex: Male
  Weight: 81 kg

DRUGS (1)
  1. KRAVE, BLUE MAGIC KRATOM [Suspect]
     Active Substance: HERBALS\MITRAGYNINE
     Indication: DRUG USE DISORDER

REACTIONS (4)
  - Drug dependence [None]
  - Drug withdrawal syndrome [None]
  - Loss of employment [None]
  - Homeless [None]

NARRATIVE: CASE EVENT DATE: 20160916
